FAERS Safety Report 9216857 (Version 1)
Quarter: 2013Q2

REPORT INFORMATION
  Report Type: Spontaneous
  Country: DK (occurrence: ZA)
  Receive Date: 20130408
  Receipt Date: 20130408
  Transmission Date: 20140414
  Serious: Yes (Death, Other)
  Sender: FDA-Public Use
  Company Number: ZA-FRI-1000044037

PATIENT
  Age: 29 Year
  Sex: Female

DRUGS (2)
  1. ESCITALOPRAM [Suspect]
     Indication: DEPRESSION
     Dosage: 10 MG
     Route: 048
     Dates: start: 2005
  2. FEMODENE [Concomitant]
     Indication: ORAL CONTRACEPTION

REACTIONS (2)
  - Arrhythmia [Fatal]
  - Sudden death [Fatal]
